FAERS Safety Report 11552492 (Version 3)
Quarter: 2017Q4

REPORT INFORMATION
  Report Type: Spontaneous
  Country: US (occurrence: US)
  Receive Date: 20150925
  Receipt Date: 20171222
  Transmission Date: 20180320
  Serious: No
  Sender: FDA-Public Use
  Company Number: US-PFIZER INC-2015321111

PATIENT
  Age: 68 Year
  Sex: Female

DRUGS (1)
  1. FLAGYL [Suspect]
     Active Substance: METRONIDAZOLE\METRONIDAZOLE HYDROCHLORIDE
     Dosage: UNK

REACTIONS (3)
  - Drug hypersensitivity [Unknown]
  - Diarrhoea [Unknown]
  - Vomiting [Unknown]
